FAERS Safety Report 14475885 (Version 2)
Quarter: 2018Q1

REPORT INFORMATION
  Report Type: Spontaneous
  Country: JP (occurrence: JP)
  Receive Date: 20180201
  Receipt Date: 20180207
  Transmission Date: 20180509
  Serious: Yes (Hospitalization)
  Sender: FDA-Public Use
  Company Number: PHJP2017JP037140

PATIENT
  Age: 75 Year
  Sex: Male
  Weight: 56.8 kg

DRUGS (9)
  1. SEEBRI BREEZHALER CAPSUL [Suspect]
     Active Substance: GLYCOPYRROLATE
     Dosage: 50 UG, UNK
     Route: 055
     Dates: start: 20180113
  2. ZACRAS [Concomitant]
     Active Substance: AMLODIPINE BESYLATE\AZILSARTAN
     Indication: HYPERTENSION
     Dosage: 1 DF, UNK
     Route: 048
     Dates: end: 20171215
  3. HERBESSER [Concomitant]
     Active Substance: DILTIAZEM HYDROCHLORIDE
     Indication: ATRIAL FIBRILLATION
     Dosage: 30 MG, QD
     Route: 048
     Dates: end: 20171215
  4. ELIQUIS [Concomitant]
     Active Substance: APIXABAN
     Indication: CEREBRAL INFARCTION
     Dosage: 5 MG, BID
     Route: 048
  5. TAKECAB [Concomitant]
     Active Substance: VONOPRAZAN FUMURATE
     Indication: GASTROOESOPHAGEAL REFLUX DISEASE
     Dosage: 10 MG, QD
     Route: 048
     Dates: end: 20171215
  6. DIOVAN [Suspect]
     Active Substance: VALSARTAN
     Indication: HYPERTENSION
     Dosage: 80 MG, QD
     Route: 048
     Dates: end: 20171215
  7. SYMBICORT [Concomitant]
     Active Substance: BUDESONIDE\FORMOTEROL FUMARATE DIHYDRATE
     Indication: ASTHMA
     Dosage: 320 MG, BID
     Route: 055
     Dates: end: 20171215
  8. CARVEDILOL. [Concomitant]
     Active Substance: CARVEDILOL
     Indication: ATRIAL FIBRILLATION
     Dosage: 2.5 MG, BID
     Route: 048
     Dates: end: 20171215
  9. SEEBRI BREEZHALER CAPSUL [Suspect]
     Active Substance: GLYCOPYRROLATE
     Indication: CHRONIC OBSTRUCTIVE PULMONARY DISEASE
     Dosage: 50 UG, UNK
     Route: 055
     Dates: end: 20171215

REACTIONS (5)
  - Pneumonia [Recovering/Resolving]
  - Hypoxia [Unknown]
  - Dyspnoea [Unknown]
  - Emphysema [Recovering/Resolving]
  - Concomitant disease aggravated [Recovering/Resolving]

NARRATIVE: CASE EVENT DATE: 20171213
